FAERS Safety Report 15219519 (Version 1)
Quarter: 2018Q3

REPORT INFORMATION
  Report Type: Report from Study
  Country: None (occurrence: US)
  Receive Date: 20180731
  Receipt Date: 20180731
  Transmission Date: 20181010
  Serious: Yes (Other)
  Sender: FDA-Public Use
  Company Number: US-ABBVIE-18K-163-2434667-00

PATIENT
  Age: 32 Year
  Sex: Female

DRUGS (2)
  1. HUMIRA [Suspect]
     Active Substance: ADALIMUMAB
     Route: 058
     Dates: start: 20170411
  2. HUMIRA [Suspect]
     Active Substance: ADALIMUMAB
     Indication: PSORIATIC ARTHROPATHY
     Route: 058

REACTIONS (9)
  - Tremor [Unknown]
  - Poor quality sleep [Unknown]
  - Anxiety disorder [Unknown]
  - Autoimmune disorder [Unknown]
  - Head titubation [Unknown]
  - Seizure [Unknown]
  - Crying [Unknown]
  - Drug ineffective [Unknown]
  - Feeding disorder [Unknown]

NARRATIVE: CASE EVENT DATE: 201807
